FAERS Safety Report 6711503-9 (Version None)
Quarter: 2010Q2

REPORT INFORMATION
  Report Type: 
  Country: None (occurrence: None)
  Receive Date: 20100505
  Receipt Date: 20100420
  Transmission Date: 20101027
  Serious: Yes (Hospitalization, Other)
  Sender: FDA-Public Use
  Company Number: PHEH2006US08868

PATIENT
  Sex: Female

DRUGS (42)
  1. ZOMETA [Suspect]
     Dosage: UNK
  2. FOSAMAX [Suspect]
     Route: 048
  3. ARIMIDEX [Concomitant]
  4. TAMOXIFEN CITRATE [Concomitant]
  5. ANUSOL                                  /NET/ [Concomitant]
  6. ABRAXANE [Concomitant]
  7. HERCEPTIN [Concomitant]
  8. LASIX [Concomitant]
  9. PREDNISONE [Concomitant]
  10. MAXAIR [Concomitant]
  11. INFLUENZA VACCINE [Concomitant]
  12. RADIATION THERAPY [Concomitant]
  13. CHEMOTHERAPEUTICS NOS [Concomitant]
  14. TYLENOL W/ CODEINE [Concomitant]
  15. TAXOL [Concomitant]
  16. KEFZOL [Concomitant]
  17. ANCEF [Concomitant]
  18. VERSED [Concomitant]
  19. FENTANYL CITRATE [Concomitant]
  20. VICODIN [Concomitant]
  21. SENSORCAINE [Concomitant]
  22. LEVAQUIN [Concomitant]
  23. HEPARIN [Concomitant]
  24. VANCOMYCIN [Concomitant]
  25. BENADRYL [Concomitant]
  26. XYLOCAINE [Concomitant]
  27. NYSTATIN [Concomitant]
  28. VALTREX [Concomitant]
  29. MORPHINE [Concomitant]
  30. ATIVAN [Concomitant]
  31. DECADRON [Concomitant]
  32. TYLENOL-500 [Concomitant]
  33. CATHFLO ACTIVASE [Concomitant]
  34. LOVENOX [Concomitant]
  35. CHLORASEPTIC SORE THROAT SPRAY [Concomitant]
  36. AFRIN [Concomitant]
  37. CLEOCIN [Concomitant]
  38. FLOXIN ^DAIICHI^ [Concomitant]
  39. PERCOCET [Concomitant]
  40. ZOFRAN [Concomitant]
  41. BACTRIM DS [Concomitant]
  42. DARVOCET-N 100 [Concomitant]

REACTIONS (67)
  - ABSCESS DRAINAGE [None]
  - ANXIETY [None]
  - ASPIRATION PLEURAL CAVITY [None]
  - BALANCE DISORDER [None]
  - BONE DEBRIDEMENT [None]
  - BONE DENSITY DECREASED [None]
  - BONE LESION [None]
  - BREAST CANCER RECURRENT [None]
  - BRONCHIAL NEOPLASM [None]
  - BRONCHITIS [None]
  - BUNDLE BRANCH BLOCK LEFT [None]
  - CARDIOMEGALY [None]
  - CENTRAL VENOUS CATHETERISATION [None]
  - CONSTIPATION [None]
  - CYST [None]
  - DENTAL CARIES [None]
  - DEVICE RELATED INFECTION [None]
  - DIARRHOEA [None]
  - DYSGEUSIA [None]
  - DYSPNOEA EXERTIONAL [None]
  - ENDOMETRIAL DISORDER [None]
  - FALL [None]
  - GINGIVAL SWELLING [None]
  - HAEMANGIOMA OF LIVER [None]
  - HAEMORRHOIDS [None]
  - HYPOPHAGIA [None]
  - HYPOVENTILATION [None]
  - HYPOXIA [None]
  - INJURY [None]
  - INTERSTITIAL LUNG DISEASE [None]
  - JAW LESION EXCISION [None]
  - JOINT SPRAIN [None]
  - LUNG INFILTRATION [None]
  - MALIGNANT NEOPLASM PROGRESSION [None]
  - MASS [None]
  - METASTASES TO CENTRAL NERVOUS SYSTEM [None]
  - METASTASES TO SPINE [None]
  - MOUTH HAEMORRHAGE [None]
  - MYOCARDIAL INFARCTION [None]
  - OPEN WOUND [None]
  - ORAL PAIN [None]
  - OSTEOMYELITIS [None]
  - OSTEONECROSIS OF JAW [None]
  - PAIN [None]
  - PAINFUL DEFAECATION [None]
  - PARAESTHESIA [None]
  - PERICARDIAL EFFUSION [None]
  - PHARYNGITIS [None]
  - PLEURAL EFFUSION [None]
  - PNEUMONIA [None]
  - PNEUMOTHORAX [None]
  - PRIMARY SEQUESTRUM [None]
  - RASH [None]
  - RECTAL FISSURE [None]
  - RECTAL HAEMORRHAGE [None]
  - SINUSITIS [None]
  - SKELETAL INJURY [None]
  - SPEECH DISORDER [None]
  - SPINAL COMPRESSION FRACTURE [None]
  - STOMATITIS [None]
  - SWELLING FACE [None]
  - TOOTH ABSCESS [None]
  - TOOTH EXTRACTION [None]
  - TOOTHACHE [None]
  - URINARY TRACT INFECTION [None]
  - UTERINE LEIOMYOMA [None]
  - WALKING AID USER [None]
